FAERS Safety Report 5006758-5 (Version None)
Quarter: 2006Q2

REPORT INFORMATION
  Report Type: 
  Country: None (occurrence: None)
  Receive Date: 20060519
  Receipt Date: 20060510
  Transmission Date: 20061013
  Serious: Yes (Hospitalization)
  Sender: FDA-Public Use
  Company Number: US-JNJFOC-20060103328

PATIENT
  Sex: Female
  Weight: 93.44 kg

DRUGS (25)
  1. REMICADE [Suspect]
     Route: 042
     Dates: start: 20010316
  2. REMICADE [Suspect]
     Route: 042
     Dates: start: 20010316
  3. REMICADE [Suspect]
     Route: 042
     Dates: start: 20010316
  4. REMICADE [Suspect]
     Route: 042
     Dates: start: 20010316
  5. REMICADE [Suspect]
     Route: 042
     Dates: start: 20010316
  6. REMICADE [Suspect]
     Route: 042
     Dates: start: 20010316
  7. REMICADE [Suspect]
     Route: 042
     Dates: start: 20010316
  8. REMICADE [Suspect]
     Route: 042
     Dates: start: 20010316
  9. REMICADE [Suspect]
     Route: 042
     Dates: start: 20010316
  10. REMICADE [Suspect]
     Route: 042
     Dates: start: 20010316
  11. REMICADE [Suspect]
     Route: 042
     Dates: start: 20010316
  12. REMICADE [Suspect]
     Route: 042
     Dates: start: 20010316
  13. REMICADE [Suspect]
     Route: 042
     Dates: start: 20010316
  14. REMICADE [Suspect]
     Route: 042
     Dates: start: 20010316
  15. REMICADE [Suspect]
     Route: 042
     Dates: start: 20010316
  16. REMICADE [Suspect]
     Route: 042
     Dates: start: 20010316
  17. REMICADE [Suspect]
     Route: 042
     Dates: start: 20010316
  18. REMICADE [Suspect]
     Route: 042
     Dates: start: 20010316
  19. REMICADE [Suspect]
     Route: 042
     Dates: start: 20010316
  20. REMICADE [Suspect]
     Route: 042
     Dates: start: 20010316
  21. REMICADE [Suspect]
     Route: 042
     Dates: start: 20010316
  22. REMICADE [Suspect]
     Route: 042
     Dates: start: 20010316
  23. REMICADE [Suspect]
     Indication: CROHN'S DISEASE
     Route: 042
     Dates: start: 20010316
  24. MESALAMINE [Concomitant]
     Indication: CROHN'S DISEASE
  25. AZATHIOPRINE [Concomitant]
     Indication: CROHN'S DISEASE

REACTIONS (1)
  - MALIGNANT NEOPLASM OF ISLETS OF LANGERHANS [None]
